FAERS Safety Report 9149367 (Version 1)
Quarter: 2013Q1

REPORT INFORMATION
  Report Type: Not Available
  Country: SE (occurrence: SE)
  Receive Date: 20130308
  Receipt Date: 20130308
  Transmission Date: 20140127
  Serious: Yes (Hospitalization)
  Sender: FDA-Public Use
  Company Number: SE-NAPPMUNDI-GBR-2013-0013335

PATIENT
  Sex: Female

DRUGS (5)
  1. OXYNORM [Suspect]
     Indication: PHANTOM PAIN
     Dosage: UNK UNK
     Route: 065
     Dates: end: 201210
  2. DOLCONTIN [Suspect]
     Indication: PHANTOM PAIN
     Dosage: 10 MG, BID
     Route: 048
     Dates: start: 201209, end: 201210
  3. OXAZEPAM [Suspect]
     Indication: PHANTOM PAIN
     Dosage: UNK
     Route: 065
     Dates: end: 201210
  4. LOSARTAN [Concomitant]
     Dosage: UNK
     Dates: end: 20121008
  5. GABAPENTIN [Concomitant]
     Dosage: UNK

REACTIONS (8)
  - Hyperkalaemia [Recovered/Resolved]
  - Renal failure [Recovered/Resolved]
  - Urinary tract infection [Recovered/Resolved]
  - Blood creatinine increased [Recovered/Resolved]
  - Decreased appetite [Recovered/Resolved]
  - Vomiting [Recovered/Resolved]
  - Dehydration [Recovered/Resolved]
  - Confusional state [Recovered/Resolved]
